FAERS Safety Report 8349255-1 (Version None)
Quarter: 2012Q2

REPORT INFORMATION
  Report Type: 
  Country: None (occurrence: None)
  Receive Date: 20120510
  Receipt Date: 20120506
  Transmission Date: 20120825
  Serious: Yes (Disabling, Other)
  Sender: FDA-Public Use
  Company Number: PHEH2012US007535

PATIENT
  Sex: Male

DRUGS (11)
  1. TOPROL-XL [Concomitant]
     Dosage: 150 MG, UNK
  2. TYLENOL (CAPLET) [Concomitant]
  3. MULTIVITAMINS PLUS IRON [Concomitant]
  4. CARBAMAZEPINE [Suspect]
  5. LISINOPRIL [Concomitant]
     Dosage: 20 MG, UNK
  6. CENTRUM [Concomitant]
  7. CELEBREX [Concomitant]
     Dosage: 200 MG, UNK
  8. ANASPEC [Concomitant]
     Dosage: 0.5 MG, UNK
  9. TEGRETOL [Suspect]
     Dosage: 200 MG, UNK
     Dates: start: 19700101
  10. PHENOBARBITAL TAB [Concomitant]
     Dosage: 30 MG, UNK
  11. NEXIUM [Concomitant]
     Dosage: 240 MG, UNK

REACTIONS (7)
  - DRUG INEFFECTIVE [None]
  - COLON CANCER [None]
  - NEUROPATHY PERIPHERAL [None]
  - LARYNGEAL CANCER [None]
  - BALANCE DISORDER [None]
  - MACULAR DEGENERATION [None]
  - BLINDNESS [None]
